FAERS Safety Report 21562967 (Version 3)
Quarter: 2023Q4

REPORT INFORMATION
  Report Type: Spontaneous
  Country: US (occurrence: US)
  Receive Date: 20221107
  Receipt Date: 20231130
  Transmission Date: 20240110
  Serious: No
  Sender: FDA-Public Use
  Company Number: US-SA-SAC20221031001772

PATIENT
  Age: 13 Year
  Sex: Male

DRUGS (1)
  1. FABRAZYME [Suspect]
     Active Substance: AGALSIDASE BETA
     Indication: Fabry^s disease
     Dosage: 65 MG, QOW
     Route: 042
     Dates: start: 20220730

REACTIONS (5)
  - Weight increased [Unknown]
  - Globotriaosylceramide increased [Unknown]
  - Globotriaosylsphingosine increased [Unknown]
  - Neutralising antibodies positive [Unknown]
  - Drug specific antibody present [Unknown]

NARRATIVE: CASE EVENT DATE: 20220101
